FAERS Safety Report 8983285 (Version 3)
Quarter: 2013Q2

REPORT INFORMATION
  Report Type: Report from Study
  Country: FR (occurrence: FR)
  Receive Date: 20121221
  Receipt Date: 20130412
  Transmission Date: 20140414
  Serious: Yes (Hospitalization, Other)
  Sender: FDA-Public Use
  Company Number: FR-ROCHE-1168806

PATIENT
  Age: 58 Year
  Sex: Female

DRUGS (5)
  1. ROACTEMRA [Suspect]
     Indication: RHEUMATOID ARTHRITIS
     Route: 065
     Dates: start: 20120326, end: 20121026
  2. AMOXICILLIN [Concomitant]
     Route: 065
     Dates: start: 20121124
  3. AUGMENTIN [Concomitant]
     Dosage: EVERY 6 HOURS
     Route: 065
  4. DALACINE [Concomitant]
     Route: 042
     Dates: start: 20121129, end: 20121219
  5. GENTAMICIN [Concomitant]
     Route: 042

REACTIONS (1)
  - Dermo-hypodermitis [Recovering/Resolving]
